FAERS Safety Report 6863063-X (Version None)
Quarter: 2010Q3

REPORT INFORMATION
  Report Type: 
  Country: None (occurrence: None)
  Receive Date: 20100721
  Receipt Date: 20100709
  Transmission Date: 20110219
  Serious: Yes (Hospitalization, Other)
  Sender: FDA-Public Use
  Company Number: BR-MEDIMMUNE-MEDI-0011427

PATIENT
  Sex: Male
  Weight: 7.08 kg

DRUGS (1)
  1. SYNAGIS [Suspect]
     Indication: BRONCHOPULMONARY DYSPLASIA
     Route: 030
     Dates: start: 20100524, end: 20100524

REACTIONS (3)
  - INCREASED BRONCHIAL SECRETION [None]
  - PNEUMONIA [None]
  - PYREXIA [None]
